FAERS Safety Report 11386146 (Version 2)
Quarter: 2017Q4

REPORT INFORMATION
  Report Type: Spontaneous
  Country: US (occurrence: US)
  Receive Date: 20150817
  Receipt Date: 20171006
  Transmission Date: 20180320
  Serious: Yes (Other)
  Sender: FDA-Public Use
  Company Number: US-SUN PHARMACEUTICAL INDUSTRIES LTD-2015US-101621

PATIENT
  Age: 39 Year
  Sex: Female

DRUGS (5)
  1. ZONISAMIDE. [Suspect]
     Active Substance: ZONISAMIDE
     Indication: MIGRAINE
     Dosage: 25 MG, DAILY
     Route: 065
  2. QVAR [Concomitant]
     Active Substance: BECLOMETHASONE DIPROPIONATE
     Indication: PRODUCT USED FOR UNKNOWN INDICATION
     Route: 055
  3. BOTULINUM TOXIN [Concomitant]
     Active Substance: BOTULINUM TOXIN NOS
     Indication: PRODUCT USED FOR UNKNOWN INDICATION
     Dosage: UNK
     Route: 030
  4. IMITREX [Concomitant]
     Active Substance: SUMATRIPTAN SUCCINATE
     Indication: MIGRAINE PROPHYLAXIS
     Dosage: UNK
     Route: 048
  5. ASTEPRO [Concomitant]
     Active Substance: AZELASTINE HYDROCHLORIDE
     Indication: PRODUCT USED FOR UNKNOWN INDICATION
     Dosage: UNK
     Route: 045

REACTIONS (4)
  - Off label use [Recovered/Resolved]
  - Myopia [Recovered/Resolved]
  - Choroidal effusion [Recovered/Resolved]
  - Angle closure glaucoma [Recovered/Resolved]
